FAERS Safety Report 5360187-3 (Version None)
Quarter: 2007Q2

REPORT INFORMATION
  Report Type: 
  Country: None (occurrence: None)
  Receive Date: 20070618
  Receipt Date: 20070606
  Transmission Date: 20071010
  Serious: Yes (Other)
  Sender: FDA-Public Use
  Company Number: PHBS2007BR09614

PATIENT
  Sex: Female
  Weight: 50 kg

DRUGS (2)
  1. COMTAN [Suspect]
     Indication: PARKINSON'S DISEASE
     Dosage: UNK, UNK
     Route: 048
  2. MAREVAN [Suspect]
     Indication: ANTICOAGULANT THERAPY
     Dosage: 0.5 TABLET/D
     Route: 048

REACTIONS (5)
  - COAGULATION TIME PROLONGED [None]
  - EPISTAXIS [None]
  - HAEMATOMA [None]
  - INTERNATIONAL NORMALISED RATIO INCREASED [None]
  - PROTHROMBIN TIME PROLONGED [None]
